FAERS Safety Report 4879673-5 (Version None)
Quarter: 2006Q1

REPORT INFORMATION
  Report Type: 
  Country: None (occurrence: None)
  Receive Date: 20060111
  Receipt Date: 20051228
  Transmission Date: 20060701
  Serious: Yes (Hospitalization)
  Sender: FDA-Public Use
  Company Number: 2006P1000005

PATIENT
  Age: 77 Year
  Sex: Male

DRUGS (5)
  1. RETEPLASE (RETEPLASE) [Suspect]
     Dosage: 20 UNK; QD
     Dates: start: 20031209, end: 20031209
  2. HEPARIN SODIUM [Suspect]
  3. SOLPRIN (ACETYLSALICYLATE CALCIUM) [Suspect]
  4. ATENOLOL [Concomitant]
  5. PRAVACHOL [Concomitant]

REACTIONS (3)
  - EPISTAXIS [None]
  - HAEMATEMESIS [None]
  - HAEMATURIA [None]
